FAERS Safety Report 25951992 (Version 1)
Quarter: 2025Q4

REPORT INFORMATION
  Report Type: Report from Study
  Country: KR (occurrence: KR)
  Receive Date: 20251023
  Receipt Date: 20251023
  Transmission Date: 20260117
  Serious: Yes (Hospitalization)
  Sender: MYLAN
  Company Number: KR-MYLANLABS-2025M1088074

PATIENT
  Age: 62 Year
  Sex: Female

DRUGS (28)
  1. PREGABALIN [Suspect]
     Active Substance: PREGABALIN
     Indication: Product used for unknown indication
     Dosage: UNK, QD
     Dates: start: 20201023, end: 20201030
  2. PREGABALIN [Suspect]
     Active Substance: PREGABALIN
     Dosage: UNK, QD
     Route: 048
     Dates: start: 20201023, end: 20201030
  3. PREGABALIN [Suspect]
     Active Substance: PREGABALIN
     Dosage: UNK, QD
     Route: 048
     Dates: start: 20201023, end: 20201030
  4. PREGABALIN [Suspect]
     Active Substance: PREGABALIN
     Dosage: UNK, QD
     Dates: start: 20201023, end: 20201030
  5. LYRICA [Concomitant]
     Active Substance: PREGABALIN
     Dosage: UNK, QD
     Dates: start: 20190723, end: 20201021
  6. LYRICA [Concomitant]
     Active Substance: PREGABALIN
     Dosage: UNK, QD
     Route: 048
     Dates: start: 20190723, end: 20201021
  7. LYRICA [Concomitant]
     Active Substance: PREGABALIN
     Dosage: UNK, QD
     Route: 048
     Dates: start: 20190723, end: 20201021
  8. LYRICA [Concomitant]
     Active Substance: PREGABALIN
     Dosage: UNK, QD
     Dates: start: 20190723, end: 20201021
  9. CLOPIDOGREL BISULFATE [Concomitant]
     Active Substance: CLOPIDOGREL BISULFATE
     Dosage: UNK, QD
     Dates: start: 20180711
  10. CLOPIDOGREL BISULFATE [Concomitant]
     Active Substance: CLOPIDOGREL BISULFATE
     Dosage: UNK, QD
     Route: 048
     Dates: start: 20180711
  11. CLOPIDOGREL BISULFATE [Concomitant]
     Active Substance: CLOPIDOGREL BISULFATE
     Dosage: UNK, QD
     Route: 048
     Dates: start: 20180711
  12. CLOPIDOGREL BISULFATE [Concomitant]
     Active Substance: CLOPIDOGREL BISULFATE
     Dosage: UNK, QD
     Dates: start: 20180711
  13. CHOLINE ALFOSCERATE [Concomitant]
     Active Substance: CHOLINE ALFOSCERATE
     Dosage: UNK, QD
     Dates: start: 20180711
  14. CHOLINE ALFOSCERATE [Concomitant]
     Active Substance: CHOLINE ALFOSCERATE
     Dosage: UNK, QD
     Route: 048
     Dates: start: 20180711
  15. CHOLINE ALFOSCERATE [Concomitant]
     Active Substance: CHOLINE ALFOSCERATE
     Dosage: UNK, QD
     Route: 048
     Dates: start: 20180711
  16. CHOLINE ALFOSCERATE [Concomitant]
     Active Substance: CHOLINE ALFOSCERATE
     Dosage: UNK, QD
     Dates: start: 20180711
  17. EZETIMIBE\ROSUVASTATIN CALCIUM [Concomitant]
     Active Substance: EZETIMIBE\ROSUVASTATIN CALCIUM
     Dosage: UNK, QD
     Dates: start: 20190130
  18. EZETIMIBE\ROSUVASTATIN CALCIUM [Concomitant]
     Active Substance: EZETIMIBE\ROSUVASTATIN CALCIUM
     Dosage: UNK, QD
     Route: 048
     Dates: start: 20190130
  19. EZETIMIBE\ROSUVASTATIN CALCIUM [Concomitant]
     Active Substance: EZETIMIBE\ROSUVASTATIN CALCIUM
     Dosage: UNK, QD
     Route: 048
     Dates: start: 20190130
  20. EZETIMIBE\ROSUVASTATIN CALCIUM [Concomitant]
     Active Substance: EZETIMIBE\ROSUVASTATIN CALCIUM
     Dosage: UNK, QD
     Dates: start: 20190130
  21. LAFUTIDINE [Concomitant]
     Active Substance: LAFUTIDINE
     Dosage: UNK, QD
     Dates: start: 20181031
  22. LAFUTIDINE [Concomitant]
     Active Substance: LAFUTIDINE
     Dosage: UNK, QD
     Route: 048
     Dates: start: 20181031
  23. LAFUTIDINE [Concomitant]
     Active Substance: LAFUTIDINE
     Dosage: UNK, QD
     Route: 048
     Dates: start: 20181031
  24. LAFUTIDINE [Concomitant]
     Active Substance: LAFUTIDINE
     Dosage: UNK, QD
     Dates: start: 20181031
  25. BUSPIRONE HYDROCHLORIDE [Concomitant]
     Active Substance: BUSPIRONE HYDROCHLORIDE
     Dosage: UNK, QD
     Dates: start: 20191126
  26. BUSPIRONE HYDROCHLORIDE [Concomitant]
     Active Substance: BUSPIRONE HYDROCHLORIDE
     Dosage: UNK, QD
     Route: 048
     Dates: start: 20191126
  27. BUSPIRONE HYDROCHLORIDE [Concomitant]
     Active Substance: BUSPIRONE HYDROCHLORIDE
     Dosage: UNK, QD
     Route: 048
     Dates: start: 20191126
  28. BUSPIRONE HYDROCHLORIDE [Concomitant]
     Active Substance: BUSPIRONE HYDROCHLORIDE
     Dosage: UNK, QD
     Dates: start: 20191126

REACTIONS (1)
  - Arthropod bite [Recovered/Resolved]

NARRATIVE: CASE EVENT DATE: 20201024
